FAERS Safety Report 7568269-2 (Version None)
Quarter: 2011Q2

REPORT INFORMATION
  Report Type: 
  Country: None (occurrence: None)
  Receive Date: 20110623
  Receipt Date: 20110614
  Transmission Date: 20111010
  Serious: No
  Sender: FDA-Public Use
  Company Number: CA-ROCHE-768950

PATIENT
  Sex: Male
  Weight: 120.2 kg

DRUGS (13)
  1. METFORMIN HCL [Concomitant]
  2. GLYBURIDE [Concomitant]
  3. CELEBREX [Concomitant]
  4. METHOTREXATE [Concomitant]
  5. RAMIPRIL [Concomitant]
     Indication: BLOOD PRESSURE
  6. HYDROXYCHLOROQUINE SULFATE [Concomitant]
  7. DICLOFENAC SODIUM [Concomitant]
     Indication: ANTIINFLAMMATORY THERAPY
  8. TOCILIZUMAB [Suspect]
     Route: 042
     Dates: start: 20110526
  9. TRAMADOL HCL [Concomitant]
     Indication: PAIN
  10. MINOCYCLINE HCL [Concomitant]
     Indication: THERAPEUTIC PROCEDURE
  11. TOCILIZUMAB [Suspect]
     Route: 042
     Dates: start: 20110203, end: 20110203
  12. TOCILIZUMAB [Suspect]
     Indication: RHEUMATOID ARTHRITIS
     Dosage: FORM: INFUSION
     Route: 042
     Dates: start: 20100917, end: 20100917
  13. INFLIXIMAB [Concomitant]

REACTIONS (5)
  - CHEST DISCOMFORT [None]
  - INFLUENZA LIKE ILLNESS [None]
  - COUGH [None]
  - FEELING HOT [None]
  - DYSPNOEA [None]
